FAERS Safety Report 7582994-9 (Version None)
Quarter: 2011Q2

REPORT INFORMATION
  Report Type: 
  Country: None (occurrence: None)
  Receive Date: 20110627
  Receipt Date: 20110627
  Transmission Date: 20111010
  Serious: Yes (Hospitalization)
  Sender: FDA-Public Use
  Company Number: None

PATIENT
  Sex: Female
  Weight: 68.0396 kg

DRUGS (1)
  1. PRAMIPEXOLE DIHYDROCHLORIDE [Suspect]
     Indication: MULTIPLE SCLEROSIS
     Dosage: 0.25 BID PO
     Route: 048
     Dates: start: 20110521, end: 20110524

REACTIONS (4)
  - DIZZINESS [None]
  - CHEST PAIN [None]
  - HEADACHE [None]
  - RASH [None]
